FAERS Safety Report 20186970 (Version 1)
Quarter: 2021Q4

REPORT INFORMATION
  Report Type: Spontaneous
  Country: IT (occurrence: IT)
  Receive Date: 20211215
  Receipt Date: 20211215
  Transmission Date: 20220304
  Serious: Yes (Hospitalization)
  Sender: FDA-Public Use
  Company Number: None

PATIENT
  Age: 80 Year
  Sex: Male
  Weight: 85 kg

DRUGS (3)
  1. DAPTOMYCIN [Interacting]
     Active Substance: DAPTOMYCIN
     Indication: Pneumonitis
     Route: 042
     Dates: start: 20211005, end: 20211018
  2. CLOXACILLIN [Interacting]
     Active Substance: CLOXACILLIN
     Indication: Meningitis
     Route: 042
     Dates: start: 20210927, end: 20211013
  3. LASIX [Concomitant]
     Active Substance: FUROSEMIDE
     Indication: Oedema
     Route: 042
     Dates: start: 20210926, end: 20211015

REACTIONS (5)
  - Acute kidney injury [Recovering/Resolving]
  - Blood pressure increased [Recovering/Resolving]
  - Hypercreatinaemia [Recovering/Resolving]
  - Drug interaction [Unknown]
  - Off label use [Unknown]

NARRATIVE: CASE EVENT DATE: 20211005
